FAERS Safety Report 20793540 (Version 8)
Quarter: 2022Q3

REPORT INFORMATION
  Report Type: Other
  Country: LB (occurrence: LB)
  Receive Date: 20220506
  Receipt Date: 20220915
  Transmission Date: 20221027
  Serious: Yes (Other)
  Sender: FDA-Public Use
  Company Number: LB-002147023-NVSC2022LB097788

PATIENT
  Age: 62 Year
  Sex: Male
  Weight: 90 kg

DRUGS (4)
  1. LUCENTIS [Suspect]
     Active Substance: RANIBIZUMAB
     Indication: Diabetic retinal oedema
     Dosage: 1 DOSAGE FORM (20 MG/ML) BOTH EYES, UNKNOWN
     Route: 050
     Dates: start: 20201110, end: 202012
  2. LUCENTIS [Suspect]
     Active Substance: RANIBIZUMAB
     Dosage: 1 DOSAGE FORM (10 MG/ML) RIGHT EYE, UNKNOWN
     Route: 050
     Dates: start: 20201110
  3. LUCENTIS [Suspect]
     Active Substance: RANIBIZUMAB
     Dosage: UNK (INJECTION)
     Route: 065
     Dates: start: 202203
  4. LUCENTIS [Suspect]
     Active Substance: RANIBIZUMAB
     Dosage: UNK (INJECTION)
     Route: 065
     Dates: start: 20220520, end: 20220614

REACTIONS (4)
  - Blindness unilateral [Not Recovered/Not Resolved]
  - Cataract [Recovered/Resolved]
  - Vision blurred [Recovering/Resolving]
  - Coronavirus infection [Unknown]

NARRATIVE: CASE EVENT DATE: 20210801
